FAERS Safety Report 9245490 (Version 1)
Quarter: 2013Q2

REPORT INFORMATION
  Report Type: Spontaneous
  Country: FR (occurrence: FR)
  Receive Date: 20130422
  Receipt Date: 20130422
  Transmission Date: 20140414
  Serious: Yes (Life-Threatening)
  Sender: FDA-Public Use
  Company Number: FR-ASTRAZENECA-2013SE25967

PATIENT
  Age: 37 Year
  Sex: Female
  Weight: 115 kg

DRUGS (3)
  1. ZOMIG [Suspect]
     Indication: MIGRAINE
     Route: 048
  2. ADEPAL [Suspect]
     Indication: CONTRACEPTION
     Route: 048
     Dates: end: 20080722
  3. TAHOR [Concomitant]

REACTIONS (4)
  - Cerebral venous thrombosis [Unknown]
  - Cerebral infarction [Unknown]
  - Hemiplegia [Unknown]
  - Epilepsy [Recovered/Resolved]
